FAERS Safety Report 22361295 (Version 1)
Quarter: 2023Q2

REPORT INFORMATION
  Report Type: Spontaneous
  Country: DE (occurrence: DE)
  Receive Date: 20230524
  Receipt Date: 20230524
  Transmission Date: 20230722
  Serious: Yes (Other)
  Sender: FDA-Public Use
  Company Number: DE-002147023-NVSC2023DE115838

PATIENT
  Sex: Female

DRUGS (1)
  1. ZOLGENSMA [Suspect]
     Active Substance: ONASEMNOGENE ABEPARVOVEC-XIOI
     Indication: Spinal muscular atrophy
     Dosage: 5.0 ? 10E14 VG = 24.8 ML, ONCE/SINGLE
     Route: 042
     Dates: start: 20211209

REACTIONS (4)
  - Autoimmune haemolytic anaemia [Recovered/Resolved]
  - Vomiting [Recovered/Resolved]
  - Jaundice [Recovered/Resolved]
  - COVID-19 [Recovered/Resolved]

NARRATIVE: CASE EVENT DATE: 20230403
